FAERS Safety Report 6932749-0 (Version None)
Quarter: 2010Q3

REPORT INFORMATION
  Report Type: 
  Country: None (occurrence: None)
  Receive Date: 20100813
  Receipt Date: 20100713
  Transmission Date: 20110219
  Serious: No
  Sender: FDA-Public Use
  Company Number: 1000015084

PATIENT
  Age: 64 Year
  Sex: Female

DRUGS (17)
  1. SAVELLA [Suspect]
     Indication: FIBROMYALGIA
     Dosage: 12.5 MG (12.5 MG,1 IN 1 D), ORAL; 25 MG (12.5 MG,2 IN 1 D), ORAL; 50 MG (25 MG,2 IN 1 D), ORAL
     Route: 048
     Dates: start: 20100601, end: 20100601
  2. SAVELLA [Suspect]
     Indication: FIBROMYALGIA
     Dosage: 12.5 MG (12.5 MG,1 IN 1 D), ORAL; 25 MG (12.5 MG,2 IN 1 D), ORAL; 50 MG (25 MG,2 IN 1 D), ORAL
     Route: 048
     Dates: start: 20100601, end: 20100601
  3. SAVELLA [Suspect]
     Indication: FIBROMYALGIA
     Dosage: 12.5 MG (12.5 MG,1 IN 1 D), ORAL; 25 MG (12.5 MG,2 IN 1 D), ORAL; 50 MG (25 MG,2 IN 1 D), ORAL
     Route: 048
     Dates: start: 20100601, end: 20100601
  4. SAVELLA [Suspect]
     Indication: FIBROMYALGIA
     Dosage: 100 MG (50 MG,2 IN 1 D), ORAL; 50 MG (50 MG,1 IN 1 D), ORAL
     Route: 048
     Dates: start: 20100601, end: 20100601
  5. SAVELLA [Suspect]
     Indication: FIBROMYALGIA
     Dosage: 100 MG (50 MG,2 IN 1 D), ORAL; 50 MG (50 MG,1 IN 1 D), ORAL
     Route: 048
     Dates: start: 20100601
  6. DIABETA [Concomitant]
  7. ENALAPRIL MALEATE [Concomitant]
  8. ATENOLOL [Concomitant]
  9. HYDROCHLOROTHIAZIDE [Concomitant]
  10. PARAFAN FORTE [Concomitant]
  11. CYMBALTA [Concomitant]
  12. KLONOPIN [Concomitant]
  13. COUMADIN [Concomitant]
  14. MULTI-VITAMINS [Concomitant]
  15. ASCORBIC ACID [Concomitant]
  16. PREDNISONE [Concomitant]
  17. SINGULAIR [Concomitant]

REACTIONS (3)
  - DIPLOPIA [None]
  - HOT FLUSH [None]
  - HYPERHIDROSIS [None]
